FAERS Safety Report 14330972 (Version 1)
Quarter: 2017Q4

REPORT INFORMATION
  Report Type: Spontaneous
  Country: US (occurrence: US)
  Receive Date: 20171228
  Receipt Date: 20171228
  Transmission Date: 20180321
  Serious: No
  Sender: FDA-Public Use
  Company Number: US-009507513-1712USA012274

PATIENT
  Sex: Male

DRUGS (19)
  1. ASCORBIC ACID. [Concomitant]
     Active Substance: ASCORBIC ACID
  2. ROSUVASTATIN CALCIUM. [Concomitant]
     Active Substance: ROSUVASTATIN CALCIUM
  3. HUMALOG [Concomitant]
     Active Substance: INSULIN LISPRO
  4. DIAZEPAM. [Concomitant]
     Active Substance: DIAZEPAM
  5. ZOLOFT [Concomitant]
     Active Substance: SERTRALINE HYDROCHLORIDE
  6. ONDANSETRON HYDROCHLORIDE. [Concomitant]
     Active Substance: ONDANSETRON HYDROCHLORIDE
  7. METOPROLOL SUCCINATE. [Concomitant]
     Active Substance: METOPROLOL SUCCINATE
  8. BUMETANIDE. [Concomitant]
     Active Substance: BUMETANIDE
  9. ASPIRIN. [Concomitant]
     Active Substance: ASPIRIN
  10. PANTOPRAZOLE SODIUM. [Concomitant]
     Active Substance: PANTOPRAZOLE SODIUM
  11. INTRON A [Suspect]
     Active Substance: INTERFERON ALFA-2B
     Indication: MALIGNANT MELANOMA
     Dosage: UNK
  12. ENTRESTO [Concomitant]
     Active Substance: SACUBITRIL\VALSARTAN
  13. SPIRONOLACTONE. [Concomitant]
     Active Substance: SPIRONOLACTONE
  14. CRESTOR [Concomitant]
     Active Substance: ROSUVASTATIN CALCIUM
  15. CHOLECALCIFEROL [Concomitant]
     Active Substance: CHOLECALCIFEROL
  16. LEVEMIR [Concomitant]
     Active Substance: INSULIN DETEMIR
  17. GLIPIZIDE. [Concomitant]
     Active Substance: GLIPIZIDE
  18. FOLIC ACID. [Concomitant]
     Active Substance: FOLIC ACID
  19. DIGOXIN. [Concomitant]
     Active Substance: DIGOXIN

REACTIONS (4)
  - Tremor [Unknown]
  - Chills [Unknown]
  - Dizziness [Unknown]
  - Pyrexia [Unknown]
